FAERS Safety Report 6872369-X (Version None)
Quarter: 2010Q3

REPORT INFORMATION
  Report Type: 
  Country: None (occurrence: None)
  Receive Date: 20100723
  Receipt Date: 20080916
  Transmission Date: 20110219
  Serious: No
  Sender: FDA-Public Use
  Company Number: US-PFIZER INC-2008078746

PATIENT
  Sex: Female
  Weight: 90.9 kg

DRUGS (12)
  1. CHANTIX [Suspect]
     Indication: SMOKING CESSATION THERAPY
     Route: 048
     Dates: start: 20080801, end: 20080901
  2. LEXAPRO [Concomitant]
     Indication: ANXIETY
  3. LEXAPRO [Concomitant]
     Indication: BIPOLAR DISORDER
  4. SEROQUEL [Concomitant]
     Indication: ANXIETY
  5. SEROQUEL [Concomitant]
     Indication: BIPOLAR DISORDER
  6. ABILIFY [Concomitant]
     Indication: ANXIETY
  7. ABILIFY [Concomitant]
     Indication: BIPOLAR DISORDER
  8. ACCOLATE [Concomitant]
  9. ADVAIR DISKUS 100/50 [Concomitant]
  10. TOPAMAX [Concomitant]
  11. TEGRETOL [Concomitant]
  12. MULTI-VITAMINS [Concomitant]

REACTIONS (11)
  - ABDOMINAL DISCOMFORT [None]
  - ANXIETY [None]
  - DEPRESSION [None]
  - DIZZINESS [None]
  - HEADACHE [None]
  - INSOMNIA [None]
  - IRRITABILITY [None]
  - MALAISE [None]
  - NAUSEA [None]
  - TREMOR [None]
  - VISION BLURRED [None]
